FAERS Safety Report 15258691 (Version 7)
Quarter: 2019Q1

REPORT INFORMATION
  Report Type: Spontaneous
  Country: US (occurrence: US)
  Receive Date: 20180809
  Receipt Date: 20190107
  Transmission Date: 20190417
  Serious: Yes (Other)
  Sender: FDA-Public Use
  Company Number: US-BIOGEN-2018BI00618888

PATIENT
  Age: 54 Year
  Sex: Male

DRUGS (1)
  1. TYSABRI [Suspect]
     Active Substance: NATALIZUMAB
     Indication: MULTIPLE SCLEROSIS
     Route: 065
     Dates: start: 20070621, end: 20180709

REACTIONS (3)
  - Bone lesion [Unknown]
  - Plasma cell myeloma [Unknown]
  - Bone cancer [Unknown]

NARRATIVE: CASE EVENT DATE: 201808
